FAERS Safety Report 8189309-6 (Version None)
Quarter: 2012Q1

REPORT INFORMATION
  Report Type: 
  Country: None (occurrence: None)
  Receive Date: 20120307
  Receipt Date: 20120227
  Transmission Date: 20120608
  Serious: Yes (Hospitalization)
  Sender: FDA-Public Use
  Company Number: US-BAYER-2011-034686

PATIENT
  Age: 45 Year
  Sex: Female
  Weight: 55.782 kg

DRUGS (12)
  1. YASMIN [Suspect]
     Indication: PREMENSTRUAL SYNDROME
     Dosage: UNK
     Route: 048
     Dates: start: 20080901, end: 20090201
  2. ACETAMINOPHEN [Concomitant]
  3. MOTRIN [Concomitant]
     Dosage: 400 MG, UNK
     Route: 048
  4. LIDOCAINE [Concomitant]
  5. OXYCODONE HCL [Concomitant]
  6. SENNOSIDE [Concomitant]
  7. BUPROPION HCL [Concomitant]
  8. VALIUM [Concomitant]
     Dosage: 5 MG, UNK
     Route: 048
  9. BACLOFEN [Concomitant]
  10. YAZ [Suspect]
     Indication: PREMENSTRUAL SYNDROME
     Dosage: UNK
     Route: 048
     Dates: start: 20080901, end: 20090201
  11. ZOLPIDEM [Concomitant]
  12. DOCUSATE SODIUM [Concomitant]

REACTIONS (20)
  - CEREBRAL INFARCTION [None]
  - DEPRESSION [None]
  - HEMIPARESIS [None]
  - FATIGUE [None]
  - INJURY [None]
  - CEREBROVASCULAR ACCIDENT [None]
  - PAIN [None]
  - MUSCLE SPASMS [None]
  - AMNESIA [None]
  - MENTAL DISORDER [None]
  - ANXIETY [None]
  - ANHEDONIA [None]
  - OEDEMA PERIPHERAL [None]
  - BALANCE DISORDER [None]
  - TEMPERATURE REGULATION DISORDER [None]
  - DEEP VEIN THROMBOSIS [None]
  - NERVE INJURY [None]
  - MUSCLE ATROPHY [None]
  - LIMB DISCOMFORT [None]
  - HYPOAESTHESIA [None]
